FAERS Safety Report 14972656 (Version 9)
Quarter: 2020Q2

REPORT INFORMATION
  Report Type: Spontaneous
  Country: US (occurrence: US)
  Receive Date: 20180605
  Receipt Date: 20200414
  Transmission Date: 20200713
  Serious: No
  Sender: FDA-Public Use
  Company Number: US-PFIZER INC-2018220988

PATIENT
  Age: 57 Year
  Sex: Male

DRUGS (3)
  1. CELEBREX [Suspect]
     Active Substance: CELECOXIB
     Indication: POLYARTHRITIS
     Dosage: 200 MG, ALTERNATE DAY (ONE CAPSULE DAILY ALTERNATING EVERY OTHER DAY/ONCE DAILY ON EVEN DAYS)
  2. CELEBREX [Suspect]
     Active Substance: CELECOXIB
     Dosage: 400 MG, ALTERNATE DAY (ONCE DAILY ON ODD DAYS)
  3. CELEBREX [Suspect]
     Active Substance: CELECOXIB
     Indication: ARTHRITIS
     Dosage: 200 MG, 2X/DAY,(TAKE ONE CAPSULE DAILY ALTERNATING EVERY OTHER DAY WITH 1 TABLET TWICE A DAY (BID))

REACTIONS (2)
  - Off label use [Unknown]
  - Motor dysfunction [Unknown]
